FAERS Safety Report 4710578-6 (Version None)
Quarter: 2005Q3

REPORT INFORMATION
  Report Type: 
  Country: None (occurrence: None)
  Receive Date: 20050707
  Receipt Date: 20050421
  Transmission Date: 20060218
  Serious: Yes (Life-Threatening, Hospitalization)
  Sender: FDA-Public Use
  Company Number: PAR_0040_2005

PATIENT
  Age: 45 Year
  Sex: Female

DRUGS (5)
  1. VERAPAMIL [Suspect]
     Dosage: 7.2 G ONCE
  2. DOXEPIN HCL [Suspect]
     Dosage: 1.6 G ONCE
  3. QUETIAPINE FUMARATE [Suspect]
     Dosage: 10 G ONCE
  4. TEMAZEPAM [Suspect]
     Dosage: 200 MG ONCE
  5. CLONAZEPAM [Suspect]
     Dosage: 100 MG ONCE

REACTIONS (15)
  - ABDOMINAL DISTENSION [None]
  - ATRIOVENTRICULAR BLOCK FIRST DEGREE [None]
  - CARDIAC ARREST [None]
  - DEPRESSION [None]
  - DRUG INEFFECTIVE [None]
  - DRUG TOXICITY [None]
  - GENERAL PHYSICAL HEALTH DETERIORATION [None]
  - HAEMODIALYSIS [None]
  - HAEMODYNAMIC INSTABILITY [None]
  - HYPOTENSION [None]
  - LOSS OF CONSCIOUSNESS [None]
  - METABOLIC ACIDOSIS [None]
  - MIOSIS [None]
  - MULTIPLE DRUG OVERDOSE [None]
  - SUBENDOCARDIAL ISCHAEMIA [None]
